FAERS Safety Report 9896025 (Version 1)
Quarter: 2014Q1

REPORT INFORMATION
  Report Type: Spontaneous
  Country: US (occurrence: US)
  Receive Date: 20140213
  Receipt Date: 20140213
  Transmission Date: 20141002
  Serious: No
  Sender: FDA-Public Use
  Company Number: US-BRISTOL-MYERS SQUIBB COMPANY-18798181

PATIENT
  Age: 53 Year
  Sex: Male

DRUGS (3)
  1. ABATACEPT SUBQ INJECTION 125MG/ML [Suspect]
     Indication: RHEUMATOID ARTHRITIS
     Dosage: LAST INJECTION WAS ON 10APR2013, TOTAL 11 INJ
     Route: 058
  2. NORCO [Concomitant]
  3. ULTRAM [Concomitant]

REACTIONS (4)
  - Depression [Unknown]
  - Hypertension [Unknown]
  - Asthenia [Unknown]
  - Therapeutic response delayed [Unknown]
